FAERS Safety Report 22253707 (Version 8)
Quarter: 2024Q1

REPORT INFORMATION
  Report Type: Spontaneous
  Country: CA (occurrence: CA)
  Receive Date: 20230426
  Receipt Date: 20240219
  Transmission Date: 20240409
  Serious: Yes (Death, Life-Threatening, Hospitalization, Disabling, Other)
  Sender: FDA-Public Use
  Company Number: CA-ABBVIE-4736287

PATIENT
  Age: 50 Year
  Sex: Female
  Weight: 68 kg

DRUGS (25)
  1. HUMIRA [Suspect]
     Active Substance: ADALIMUMAB
     Indication: Rheumatoid arthritis
     Route: 058
  2. HUMIRA [Suspect]
     Active Substance: ADALIMUMAB
     Indication: Psoriatic arthropathy
  3. DESOGESTREL AND ETHINYL ESTRADIOL [Concomitant]
     Active Substance: DESOGESTREL\ETHINYL ESTRADIOL
     Indication: Product used for unknown indication
     Route: 065
  4. ERGOCALCIFEROL [Concomitant]
     Active Substance: ERGOCALCIFEROL
     Indication: Product used for unknown indication
  5. MAGNESIUM [Concomitant]
     Active Substance: MAGNESIUM
     Indication: Product used for unknown indication
     Route: 065
  6. MELOXICAM [Concomitant]
     Active Substance: MELOXICAM
     Indication: Product used for unknown indication
  7. LISINOPRIL [Concomitant]
     Active Substance: LISINOPRIL
     Indication: Product used for unknown indication
     Route: 065
  8. SULFASALAZINE [Concomitant]
     Active Substance: SULFASALAZINE
     Indication: Product used for unknown indication
     Route: 065
  9. ZESTRIL [Concomitant]
     Active Substance: LISINOPRIL
     Indication: Rheumatoid arthritis
     Route: 065
  10. CODEINE PHOSPHATE [Concomitant]
     Active Substance: CODEINE PHOSPHATE
     Indication: Product used for unknown indication
     Route: 065
  11. LEVOTHYROXINE SODIUM [Concomitant]
     Active Substance: LEVOTHYROXINE SODIUM
     Indication: Product used for unknown indication
     Route: 065
  12. DEXAMETHASONE [Concomitant]
     Active Substance: DEXAMETHASONE
     Indication: Product used for unknown indication
     Route: 065
  13. RISEDRONATE SODIUM [Concomitant]
     Active Substance: RISEDRONATE SODIUM
     Indication: Product used for unknown indication
     Route: 065
  14. FISH OIL [Concomitant]
     Active Substance: FISH OIL
     Indication: Product used for unknown indication
     Route: 065
  15. CAFFEINE [Concomitant]
     Active Substance: CAFFEINE
     Indication: Product used for unknown indication
     Route: 065
  16. PANTOPRAZOLE SODIUM [Concomitant]
     Active Substance: PANTOPRAZOLE SODIUM
     Indication: Product used for unknown indication
     Route: 065
  17. PREDNISOLONE [Concomitant]
     Active Substance: PREDNISOLONE
     Indication: Product used for unknown indication
     Route: 065
  18. GLUCOSAMINE [Concomitant]
     Active Substance: GLUCOSAMINE
     Indication: Product used for unknown indication
     Route: 065
  19. PIROXICAM [Concomitant]
     Active Substance: PIROXICAM
     Indication: Product used for unknown indication
     Route: 065
  20. ATIVAN [Concomitant]
     Active Substance: LORAZEPAM
     Indication: Product used for unknown indication
     Route: 065
  21. PREVACID [Concomitant]
     Active Substance: LANSOPRAZOLE
     Indication: Product used for unknown indication
     Dosage: CAPSULE, DELAYED RELEASE
     Route: 065
  22. Tylenol with codeine no. 2 [Concomitant]
     Indication: Product used for unknown indication
     Route: 065
  23. ACETAMINOPHEN [Concomitant]
     Active Substance: ACETAMINOPHEN
     Indication: Product used for unknown indication
  24. DESOGESTREL AND ETHINYL ESTRADIOL [Concomitant]
     Active Substance: DESOGESTREL\ETHINYL ESTRADIOL
     Indication: Product used for unknown indication
  25. Sd diclofenac potassium [Concomitant]
     Indication: Product used for unknown indication

REACTIONS (113)
  - Systemic lupus erythematosus [Fatal]
  - Rheumatoid arthritis [Fatal]
  - C-reactive protein abnormal [Fatal]
  - Lower respiratory tract infection [Fatal]
  - Treatment failure [Fatal]
  - Road traffic accident [Fatal]
  - Rash [Fatal]
  - Synovitis [Fatal]
  - Drug ineffective [Fatal]
  - Malaise [Fatal]
  - Asthma [Fatal]
  - Psoriatic arthropathy [Fatal]
  - Chest pain [Fatal]
  - Osteoarthritis [Fatal]
  - Paraesthesia [Fatal]
  - Sciatica [Fatal]
  - Pericarditis [Fatal]
  - Joint range of motion decreased [Fatal]
  - Drug intolerance [Fatal]
  - Maternal exposure during pregnancy [Unknown]
  - Lip dry [Fatal]
  - Deep vein thrombosis postoperative [Fatal]
  - Muscle spasms [Fatal]
  - Pain [Fatal]
  - Product use issue [Fatal]
  - Abdominal discomfort [Fatal]
  - Obesity [Fatal]
  - Urticaria [Fatal]
  - Sleep disorder due to general medical condition, insomnia type [Fatal]
  - Glossodynia [Fatal]
  - Swollen joint count increased [Fatal]
  - Mobility decreased [Fatal]
  - Dizziness [Fatal]
  - Alopecia [Fatal]
  - Hypoaesthesia [Fatal]
  - Fatigue [Fatal]
  - Wound [Fatal]
  - Fibromyalgia [Fatal]
  - Anxiety [Fatal]
  - Hypersensitivity [Fatal]
  - Abdominal pain upper [Fatal]
  - Diarrhoea [Fatal]
  - Blister [Fatal]
  - Gait inability [Fatal]
  - Oedema [Fatal]
  - Hip arthroplasty [Fatal]
  - Therapy non-responder [Fatal]
  - Wheezing [Fatal]
  - Hand deformity [Fatal]
  - Arthropathy [Fatal]
  - Weight increased [Fatal]
  - Therapeutic product effect decreased [Fatal]
  - Dyspnoea [Fatal]
  - Pemphigus [Fatal]
  - Product use in unapproved indication [Fatal]
  - Infection [Fatal]
  - Inflammation [Fatal]
  - Liver disorder [Fatal]
  - Autoimmune disorder [Fatal]
  - Arthralgia [Fatal]
  - Infusion related reaction [Fatal]
  - Joint swelling [Fatal]
  - Impaired healing [Fatal]
  - Prescribed overdose [Fatal]
  - Vomiting [Fatal]
  - Drug hypersensitivity [Fatal]
  - Folliculitis [Fatal]
  - Type 2 diabetes mellitus [Fatal]
  - Liver injury [Fatal]
  - Nasopharyngitis [Fatal]
  - Lung disorder [Fatal]
  - Intentional product use issue [Fatal]
  - Asthenia [Fatal]
  - Decreased appetite [Fatal]
  - Headache [Fatal]
  - Hypertension [Fatal]
  - Stomatitis [Fatal]
  - Blood cholesterol increased [Fatal]
  - Lower limb fracture [Fatal]
  - Contraindicated product administered [Fatal]
  - Confusional state [Fatal]
  - Peripheral swelling [Fatal]
  - Pruritus [Fatal]
  - Discomfort [Fatal]
  - Swelling [Fatal]
  - Night sweats [Fatal]
  - Sinusitis [Fatal]
  - Off label use [Fatal]
  - Condition aggravated [Fatal]
  - Bursitis [Fatal]
  - Gastrointestinal disorder [Fatal]
  - Injury [Fatal]
  - Facet joint syndrome [Fatal]
  - Peripheral venous disease [Fatal]
  - Duodenal ulcer perforation [Fatal]
  - Musculoskeletal pain [Fatal]
  - Helicobacter infection [Fatal]
  - General physical health deterioration [Fatal]
  - Musculoskeletal stiffness [Fatal]
  - Contusion [Fatal]
  - Dry mouth [Fatal]
  - Irritable bowel syndrome [Fatal]
  - Muscle injury [Fatal]
  - Hepatic enzyme increased [Fatal]
  - Pyrexia [Fatal]
  - Rheumatic fever [Fatal]
  - Rheumatoid factor positive [Fatal]
  - Knee arthroplasty [Fatal]
  - Anti-cyclic citrullinated peptide antibody positive [Fatal]
  - Ill-defined disorder [Fatal]
  - C-reactive protein [Fatal]
  - Swollen joint count [Fatal]
  - Tender joint count [Fatal]
